FAERS Safety Report 9448208 (Version 1)
Quarter: 2013Q3

REPORT INFORMATION
  Report Type: Spontaneous
  Country: US (occurrence: None)
  Receive Date: 20130807
  Receipt Date: 20130807
  Transmission Date: 20140515
  Serious: Yes (Other)
  Sender: FDA-Public Use
  Company Number: None

PATIENT
  Sex: Female
  Weight: 50.8 kg

DRUGS (1)
  1. RECLAST [Suspect]
     Indication: OSTEOPOROSIS
     Dates: start: 20130618

REACTIONS (7)
  - Vomiting [None]
  - Pyrexia [None]
  - Chills [None]
  - Diarrhoea [None]
  - Decreased appetite [None]
  - Asthenia [None]
  - Asthenia [None]
